FAERS Safety Report 7523574-0 (Version None)
Quarter: 2011Q2

REPORT INFORMATION
  Report Type: 
  Country: None (occurrence: None)
  Receive Date: 20110601
  Receipt Date: 20110601
  Transmission Date: 20111010
  Serious: Yes (Other)
  Sender: FDA-Public Use
  Company Number: None

PATIENT
  Age: 76 Year
  Sex: Female

DRUGS (5)
  1. BACITRACIN [Concomitant]
  2. HYDROCODONE BITARTRATE AND ACETAMINOPHEN [Concomitant]
  3. PREMPRO [Concomitant]
  4. VALACYCLOVIR [Concomitant]
  5. GABAPENTIN [Suspect]
     Dosage: 300MG TID PO
     Route: 048
     Dates: start: 20110522, end: 20110529

REACTIONS (3)
  - SOMNOLENCE [None]
  - URINARY RETENTION [None]
  - HEADACHE [None]
